FAERS Safety Report 12535025 (Version 1)
Quarter: 2016Q3

REPORT INFORMATION
  Report Type: Spontaneous
  Country: US (occurrence: US)
  Receive Date: 20160707
  Receipt Date: 20160707
  Transmission Date: 20161109
  Serious: No
  Sender: FDA-Public Use
  Company Number: US-ELI_LILLY_AND_COMPANY-US201606008033

PATIENT
  Sex: Female

DRUGS (2)
  1. PROLIA [Concomitant]
     Active Substance: DENOSUMAB
  2. FORTEO [Suspect]
     Active Substance: TERIPARATIDE
     Indication: OSTEOPOROSIS
     Dosage: UNK, QD
     Route: 065
     Dates: start: 201508

REACTIONS (2)
  - Pain in extremity [Unknown]
  - Foot deformity [Unknown]
